FAERS Safety Report 4606902-5 (Version None)
Quarter: 2005Q1

REPORT INFORMATION
  Report Type: 
  Country: None (occurrence: None)
  Receive Date: 20050310
  Receipt Date: 20050217
  Transmission Date: 20050727
  Serious: Yes (Other)
  Sender: FDA-Public Use
  Company Number: TRP_0070-_2005

PATIENT
  Age: 70 Year
  Sex: Male

DRUGS (3)
  1. RIBASPHERE [Suspect]
     Indication: HEPATITIS C
     Dates: start: 20041012
  2. PEG-INTRON/PEGINTRFERON ALFA-2B/SCHERING-PLOUGH/REDIPEN [Suspect]
     Indication: HEPATITIS C
     Dates: start: 20041012
  3. IRBESARTAN [Concomitant]

REACTIONS (1)
  - ANAEMIA [None]
